FAERS Safety Report 18538977 (Version 1)
Quarter: 2020Q4

REPORT INFORMATION
  Report Type: Spontaneous
  Country: IL (occurrence: IL)
  Receive Date: 20201124
  Receipt Date: 20201124
  Transmission Date: 20210114
  Serious: Yes (Life-Threatening, Hospitalization)
  Sender: FDA-Public Use
  Company Number: IL-ENDO PHARMACEUTICALS INC-2020-007345

PATIENT
  Age: 24 Year
  Sex: Male

DRUGS (1)
  1. ADRENALIN CHLORIDE SOLUTION [Suspect]
     Active Substance: EPINEPHRINE HYDROCHLORIDE
     Indication: SURGERY
     Dosage: UNK 1:1000 DILUTION, SINGLE
     Route: 045

REACTIONS (2)
  - Congestive cardiomyopathy [Recovering/Resolving]
  - Hypertensive crisis [Recovering/Resolving]
